FAERS Safety Report 11261027 (Version 1)
Quarter: 2015Q3

REPORT INFORMATION
  Report Type: Spontaneous
  Country: US (occurrence: US)
  Receive Date: 20150710
  Receipt Date: 20150710
  Transmission Date: 20151125
  Serious: No
  Sender: FDA-Public Use
  Company Number: US-PURDUE-USA-2014-0119957

PATIENT
  Sex: Male

DRUGS (1)
  1. BUTRANS [Suspect]
     Active Substance: BUPRENORPHINE
     Indication: PRODUCT USED FOR UNKNOWN INDICATION
     Dosage: 20 MCG/HR, WEEKLY
     Route: 062
     Dates: start: 201410, end: 201412

REACTIONS (10)
  - Wrong technique in product usage process [Unknown]
  - Drug effect decreased [Unknown]
  - Application site pain [Unknown]
  - Application site rash [Unknown]
  - Unevaluable event [Unknown]
  - Drug administered at inappropriate site [Unknown]
  - Application site inflammation [Unknown]
  - Drug withdrawal syndrome [Unknown]
  - Drug ineffective [Unknown]
  - Body temperature fluctuation [Unknown]
